FAERS Safety Report 4479348-0 (Version None)
Quarter: 2004Q4

REPORT INFORMATION
  Report Type: 
  Country: None (occurrence: None)
  Receive Date: 20041020
  Receipt Date: 20041008
  Transmission Date: 20050328
  Serious: Yes (Hospitalization)
  Sender: FDA-Public Use
  Company Number: FR-JNJFOC-20040800493

PATIENT
  Age: 82 Year
  Sex: Female
  Weight: 53 kg

DRUGS (7)
  1. REMINYL [Suspect]
     Route: 049
     Dates: start: 20040601, end: 20040623
  2. DEROXAT [Concomitant]
     Route: 065
  3. DOLIPRANE [Concomitant]
     Indication: PAIN
     Route: 065
  4. KARDEGIC [Concomitant]
     Route: 065
  5. CORVASAL [Concomitant]
     Route: 065
  6. HYZAAR [Concomitant]
     Route: 065
  7. HYZAAR [Concomitant]
     Route: 065

REACTIONS (4)
  - AMNESIA [None]
  - DISORIENTATION [None]
  - RASH PUSTULAR [None]
  - TOXIC SKIN ERUPTION [None]
